FAERS Safety Report 21156714 (Version 1)
Quarter: 2022Q3

REPORT INFORMATION
  Report Type: Spontaneous
  Country: US (occurrence: None)
  Receive Date: 20220729
  Receipt Date: 20220729
  Transmission Date: 20221027
  Serious: Yes (Disabling)
  Sender: FDA-Public Use
  Company Number: None

PATIENT
  Age: 50 Year
  Sex: Female
  Weight: 71.1 kg

DRUGS (1)
  1. PROLIA [Suspect]
     Active Substance: DENOSUMAB
     Indication: Osteoporosis
     Dosage: OTHER QUANTITY : 1 INJECTION(S);?OTHER FREQUENCY : 1 TIME;?
     Route: 030
     Dates: start: 20220523

REACTIONS (41)
  - Myalgia [None]
  - Bone pain [None]
  - Neuralgia [None]
  - Feeling hot [None]
  - Feeling cold [None]
  - Fatigue [None]
  - Asthenia [None]
  - Chest discomfort [None]
  - Heart rate irregular [None]
  - Nausea [None]
  - Dyspepsia [None]
  - Dyspepsia [None]
  - Diarrhoea [None]
  - Faeces soft [None]
  - Headache [None]
  - Dizziness [None]
  - Depression [None]
  - Anxiety [None]
  - Rheumatoid arthritis [None]
  - Muscle spasms [None]
  - Muscle spasms [None]
  - Arthralgia [None]
  - Hypokinesia [None]
  - Electric shock sensation [None]
  - Pain [None]
  - Skin burning sensation [None]
  - Pruritus [None]
  - Dry skin [None]
  - Epicondylitis [None]
  - Decreased appetite [None]
  - Gastrointestinal pain [None]
  - Dysgeusia [None]
  - Poor quality sleep [None]
  - Feeling abnormal [None]
  - Disturbance in attention [None]
  - Tremor [None]
  - Renal pain [None]
  - Goitre [None]
  - Salivary gland enlargement [None]
  - Bedridden [None]
  - Feeling abnormal [None]

NARRATIVE: CASE EVENT DATE: 20220523
